FAERS Safety Report 7843576-4 (Version None)
Quarter: 2011Q4

REPORT INFORMATION
  Report Type: 
  Country: None (occurrence: None)
  Receive Date: 20111017
  Receipt Date: 20111004
  Transmission Date: 20120403
  Serious: Yes (Other)
  Sender: FDA-Public Use
  Company Number: B0754820A

PATIENT
  Age: 8 Year
  Sex: Male

DRUGS (1)
  1. LAMOTRIGINE [Suspect]
     Indication: CONVULSION

REACTIONS (8)
  - LYMPHADENOPATHY [None]
  - DERMATITIS EXFOLIATIVE [None]
  - HEPATIC NECROSIS [None]
  - HEPATITIS FULMINANT [None]
  - DRUG HYPERSENSITIVITY [None]
  - HUMAN HERPESVIRUS 6 INFECTION [None]
  - ERYTHEMA [None]
  - FACE OEDEMA [None]
